FAERS Safety Report 6710588-3 (Version None)
Quarter: 2010Q2

REPORT INFORMATION
  Report Type: 
  Country: None (occurrence: None)
  Receive Date: 20100504
  Receipt Date: 20100426
  Transmission Date: 20101027
  Serious: Yes (Hospitalization)
  Sender: FDA-Public Use
  Company Number: FR-ABBOTT-10P-056-0637876-00

PATIENT
  Sex: Male
  Weight: 60 kg

DRUGS (9)
  1. KALETRA [Suspect]
     Indication: DRUG USE FOR UNKNOWN INDICATION
     Dosage: 12 DFCAPSULES IN ONE INTAKE
     Route: 048
     Dates: start: 20100406, end: 20100406
  2. KALETRA [Suspect]
  3. PRAVASTATIN [Concomitant]
     Indication: DRUG USE FOR UNKNOWN INDICATION
  4. CLORAZAPATE DIPOTASSIC(TRANXEN) [Concomitant]
     Dosage: 4 DF DAILY, 4 IN 1 DAY
     Route: 048
  5. ZUCLOPENTHIXOL [Concomitant]
     Indication: DRUG USE FOR UNKNOWN INDICATION
     Dosage: 1 DF; 1 IN 1 DAY
  6. TRIHEXYPHENIDYL HCL [Concomitant]
     Indication: DRUG USE FOR UNKNOWN INDICATION
     Dosage: 4 DOSAGE FORMS DAILY
  7. EMCITRICITABINE, TENOFOVIR DISOPROXIL (TRUVADA) [Concomitant]
     Indication: DRUG USE FOR UNKNOWN INDICATION
     Dosage: 1 DOSAGE FORMS; 1 IN 1 DAY
  8. RISPERDAL [Concomitant]
     Indication: DRUG USE FOR UNKNOWN INDICATION
     Dosage: 1 DOSAGE FORM DAILY
  9. LITHIUM CARBONATE [Concomitant]
     Indication: DRUG USE FOR UNKNOWN INDICATION
     Dosage: 2.5 DOSAGE FORMS DAILY

REACTIONS (2)
  - ALCOHOL POISONING [None]
  - OVERDOSE [None]
